FAERS Safety Report 8600446-1 (Version None)
Quarter: 2012Q3

REPORT INFORMATION
  Report Type: 
  Country: None (occurrence: None)
  Receive Date: 20120817
  Receipt Date: 20120807
  Transmission Date: 20120928
  Serious: Yes (Hospitalization, Other)
  Sender: FDA-Public Use
  Company Number: US-BAYER-2012-009597

PATIENT
  Age: 16 Year
  Sex: Female
  Weight: 66.213 kg

DRUGS (11)
  1. YAZ [Suspect]
     Indication: PREMENSTRUAL SYNDROME
  2. DOXYCYCLINE HYCLATE [Concomitant]
  3. ADVIL [Concomitant]
  4. ALBUTEROL [Concomitant]
     Dosage: 2.5 MG, UNK
     Route: 045
     Dates: start: 20091202
  5. YAZ [Suspect]
     Indication: ACNE
     Dosage: UNK
     Dates: start: 20091001, end: 20091226
  6. YAZ [Suspect]
     Indication: MENSTRUAL CYCLE MANAGEMENT
  7. MOTRIN [Concomitant]
     Indication: PAIN
  8. NAPROXEN [Concomitant]
     Dosage: 500 MG, BID
     Route: 048
     Dates: start: 20091026
  9. YAZ [Suspect]
     Indication: DYSMENORRHOEA
  10. QVAR 40 [Concomitant]
     Dosage: 80 MG, BID 1 PUFF
     Route: 045
     Dates: start: 20091202
  11. IBUPROFEN [Concomitant]

REACTIONS (8)
  - GENERAL PHYSICAL HEALTH DETERIORATION [None]
  - MUSCULAR WEAKNESS [None]
  - DEEP VEIN THROMBOSIS [None]
  - EMOTIONAL DISTRESS [None]
  - PULMONARY EMBOLISM [None]
  - PAIN IN EXTREMITY [None]
  - ILIAC VEIN OCCLUSION [None]
  - OEDEMA PERIPHERAL [None]
